FAERS Safety Report 18242528 (Version 2)
Quarter: 2020Q3

REPORT INFORMATION
  Report Type: Spontaneous
  Country: US (occurrence: US)
  Receive Date: 20200908
  Receipt Date: 20200915
  Transmission Date: 20201103
  Serious: Yes (Hospitalization)
  Sender: FDA-Public Use
  Company Number: US-LUNDBECK-DKLU3020655

PATIENT
  Age: 13 Year
  Sex: Male

DRUGS (26)
  1. LAMOTRIGINE. [Concomitant]
     Active Substance: LAMOTRIGINE
     Indication: SEIZURE
     Route: 065
  2. CLOBAZAM. [Interacting]
     Active Substance: CLOBAZAM
     Dosage: DECREASED BY 25PERCENT OF INITIAL DOSE
     Route: 065
  3. CLOBAZAM. [Interacting]
     Active Substance: CLOBAZAM
     Dosage: DECREASED BY 50PERCENT OF INITIAL DOSE
     Route: 065
  4. CANNABIDIOL [Interacting]
     Active Substance: CANNABIDIOL
     Indication: EPILEPSY
     Dosage: 5 MG/KG/DAY
     Route: 065
  5. CANNABIDIOL [Interacting]
     Active Substance: CANNABIDIOL
     Indication: SEVERE MYOCLONIC EPILEPSY OF INFANCY
     Dosage: INCREASED TO 10 MG/KG/DAY PER TITRATION SCHEDULE
     Route: 065
  6. LITHIUM. [Interacting]
     Active Substance: LITHIUM
     Indication: SEIZURE
     Route: 065
  7. LITHIUM. [Interacting]
     Active Substance: LITHIUM
     Route: 065
  8. VALPROIC ACID. [Concomitant]
     Active Substance: VALPROIC ACID
     Indication: SEIZURE
     Route: 065
  9. CANNABIDIOL [Interacting]
     Active Substance: CANNABIDIOL
     Indication: LENNOX-GASTAUT SYNDROME
  10. CLONIDINE. [Suspect]
     Active Substance: CLONIDINE
     Indication: SEIZURE
     Route: 065
  11. RUFINAMIDE [Concomitant]
     Active Substance: RUFINAMIDE
     Indication: SEIZURE
     Route: 065
  12. TRAZODONE [Concomitant]
     Active Substance: TRAZODONE HYDROCHLORIDE
     Indication: SEIZURE
     Route: 065
  13. CLONIDINE. [Suspect]
     Active Substance: CLONIDINE
     Dosage: MIDDAY DOSE HELD
     Route: 065
  14. OXCARBAZEPINE. [Concomitant]
     Active Substance: OXCARBAZEPINE
     Indication: SEIZURE
     Route: 065
  15. TOPIRAMATE. [Concomitant]
     Active Substance: TOPIRAMATE
     Indication: SEIZURE
     Route: 065
  16. FELBAMATE. [Concomitant]
     Active Substance: FELBAMATE
     Dosage: 24 MG/KG/DAY AND MIDDAY DOSE WAS HELD
     Route: 065
  17. QUETIAPINE. [Concomitant]
     Active Substance: QUETIAPINE
     Indication: SEIZURE
     Route: 065
  18. CLOBAZAM. [Suspect]
     Active Substance: CLOBAZAM
     Indication: SEIZURE
     Route: 065
  19. LACOSAMIDE. [Concomitant]
     Active Substance: LACOSAMIDE
     Indication: SEIZURE
     Route: 065
  20. CANNABIDIOL [Interacting]
     Active Substance: CANNABIDIOL
     Indication: SEVERE MYOCLONIC EPILEPSY OF INFANCY
  21. FELBAMATE. [Concomitant]
     Active Substance: FELBAMATE
     Indication: SEIZURE
     Dosage: 24 MG/KG/DAY
     Route: 065
  22. QUETIAPINE. [Concomitant]
     Active Substance: QUETIAPINE
     Route: 065
  23. CANNABIDIOL [Interacting]
     Active Substance: CANNABIDIOL
     Indication: SEIZURE
  24. LITHIUM. [Interacting]
     Active Substance: LITHIUM
     Route: 065
  25. LEVETIRACETAM. [Concomitant]
     Active Substance: LEVETIRACETAM
     Indication: SEIZURE
     Route: 065
  26. PERPHENAZINE. [Concomitant]
     Active Substance: PERPHENAZINE
     Indication: SEIZURE
     Route: 065

REACTIONS (7)
  - Lethargy [Recovered/Resolved]
  - Fatigue [Recovering/Resolving]
  - Asthenia [Recovered/Resolved]
  - Hypophagia [Recovered/Resolved]
  - Drug interaction [Unknown]
  - Toxicity to various agents [Recovering/Resolving]
  - Balance disorder [Recovered/Resolved]
